FAERS Safety Report 24783405 (Version 1)
Quarter: 2024Q4

REPORT INFORMATION
  Report Type: Report from Study
  Country: EG (occurrence: EG)
  Receive Date: 20241227
  Receipt Date: 20241227
  Transmission Date: 20250115
  Serious: Yes (Hospitalization)
  Sender: ABBVIE
  Company Number: EG-ABBVIE-6065145

PATIENT
  Age: 57 Year
  Sex: Female

DRUGS (6)
  1. VENCLEXTA [Suspect]
     Active Substance: VENETOCLAX
     Indication: Acute myeloid leukaemia
     Dosage: ONE TAB ON DAY 0, THEN TWO TABS ON DAY 2, THEN 3 TABS ON DAY 3 TILL REACHING THE MAINTENANCE DOSE...
     Route: 048
     Dates: start: 20240904
  2. LEVOFLOXACIN [Concomitant]
     Active Substance: LEVOFLOXACIN
     Indication: Product used for unknown indication
     Dosage: START DATE TEXT: BEFORE VENCLEXTA
  3. ALLOPURINOL [Concomitant]
     Active Substance: ALLOPURINOL
     Indication: Product used for unknown indication
     Dosage: START DATE TEXT: BEFORE VENCLEXTA
  4. SULFAMETHOXAZOLE\TRIMETHOPRIM [Concomitant]
     Active Substance: SULFAMETHOXAZOLE\TRIMETHOPRIM
     Indication: Product used for unknown indication
     Dosage: START DATE TEXT: BEFORE VENCLEXTA
  5. Lovir [Concomitant]
     Indication: Product used for unknown indication
     Dosage: START DATE TEXT: BEFORE VENCLEXTA
  6. CONTROLOC [Concomitant]
     Active Substance: PANTOPRAZOLE SODIUM
     Indication: Product used for unknown indication
     Dosage: START DATE TEXT: BEFORE VENCLEXTA

REACTIONS (3)
  - Bone marrow transplant [Recovered/Resolved]
  - Cytomegalovirus infection [Not Recovered/Not Resolved]
  - Immunodeficiency [Unknown]

NARRATIVE: CASE EVENT DATE: 20240101
